FAERS Safety Report 17949015 (Version 1)
Quarter: 2020Q2

REPORT INFORMATION
  Report Type: Spontaneous
  Country: US (occurrence: US)
  Receive Date: 20200625
  Receipt Date: 20200625
  Transmission Date: 20200714
  Serious: No
  Sender: FDA-Public Use
  Company Number: US-ROCHE-2541238

PATIENT
  Age: 31 Year
  Sex: Male
  Weight: 70.37 kg

DRUGS (2)
  1. KLONOPIN [Suspect]
     Active Substance: CLONAZEPAM
     Dosage: 1 MG BIO/PER
     Route: 048
     Dates: start: 20200127, end: 20200130
  2. KLONOPIN [Suspect]
     Active Substance: CLONAZEPAM
     Indication: ANXIETY
     Dosage: YES
     Route: 048
     Dates: start: 20200127

REACTIONS (3)
  - Product use in unapproved indication [Unknown]
  - Off label use [Unknown]
  - Tinnitus [Unknown]

NARRATIVE: CASE EVENT DATE: 20200127
